FAERS Safety Report 25453514 (Version 1)
Quarter: 2025Q2

REPORT INFORMATION
  Report Type: Spontaneous
  Country: US (occurrence: US)
  Receive Date: 20250619
  Receipt Date: 20250619
  Transmission Date: 20250717
  Serious: Yes (Other)
  Sender: ABBVIE
  Company Number: US-ABBVIE-6325945

PATIENT
  Age: 58 Year

DRUGS (1)
  1. OZURDEX [Suspect]
     Active Substance: DEXAMETHASONE
     Indication: Retinal oedema
     Route: 050

REACTIONS (9)
  - Blindness [Unknown]
  - Corneal transplant [Unknown]
  - Ocular hyperaemia [Unknown]
  - Eye disorder [Unknown]
  - Glaucoma [Unknown]
  - Eye pain [Unknown]
  - Eye haemorrhage [Unknown]
  - Air embolism [Unknown]
  - Retinal artery occlusion [Unknown]
